FAERS Safety Report 13277501 (Version 3)
Quarter: 2017Q1

REPORT INFORMATION
  Report Type: Spontaneous
  Country: US (occurrence: US)
  Receive Date: 20170228
  Receipt Date: 20170320
  Transmission Date: 20170428
  Serious: Yes (Other)
  Sender: FDA-Public Use
  Company Number: US-BAYER-2017-038855

PATIENT
  Age: 26 Year
  Sex: Female

DRUGS (1)
  1. SKYLA [Suspect]
     Active Substance: LEVONORGESTREL
     Indication: CONTRACEPTION
     Dosage: 14 MCG/24HR, CONT
     Route: 015
     Dates: start: 20160823

REACTIONS (8)
  - Human chorionic gonadotropin decreased [Recovered/Resolved]
  - Pregnancy with contraceptive device [Recovering/Resolving]
  - Abortion spontaneous [Recovered/Resolved]
  - Menorrhagia [Recovered/Resolved]
  - Drug ineffective [None]
  - Loss of consciousness [None]
  - Abdominal pain lower [None]
  - Menstruation delayed [None]

NARRATIVE: CASE EVENT DATE: 201701
